FAERS Safety Report 19065758 (Version 1)
Quarter: 2021Q1

REPORT INFORMATION
  Report Type: Report from Study
  Country: IT (occurrence: IT)
  Receive Date: 20210327
  Receipt Date: 20210327
  Transmission Date: 20210420
  Serious: Yes (Hospitalization, Other)
  Sender: FDA-Public Use
  Company Number: IT-ACCORD-220766

PATIENT
  Age: 79 Year
  Sex: Female

DRUGS (7)
  1. NITRAZEPAM [Suspect]
     Active Substance: NITRAZEPAM
     Route: 048
     Dates: start: 20201222, end: 20201222
  2. BISOPROLOL [Concomitant]
     Active Substance: BISOPROLOL
     Route: 048
  3. QUETIAPINE. [Suspect]
     Active Substance: QUETIAPINE
     Route: 048
     Dates: start: 20201222, end: 20201222
  4. RAMIPRIL. [Concomitant]
     Active Substance: RAMIPRIL
  5. MIRTAZAPINE. [Suspect]
     Active Substance: MIRTAZAPINE
     Route: 048
     Dates: start: 20201222, end: 20201222
  6. LEVOPRAID [Concomitant]
  7. WARFARIN [Concomitant]
     Active Substance: WARFARIN

REACTIONS (5)
  - Sopor [Unknown]
  - Drug abuse [Unknown]
  - Bradyphrenia [Unknown]
  - Tachycardia [Unknown]
  - Intentional self-injury [Unknown]

NARRATIVE: CASE EVENT DATE: 20201222
